FAERS Safety Report 7775229-5 (Version None)
Quarter: 2011Q3

REPORT INFORMATION
  Report Type: 
  Country: None (occurrence: None)
  Receive Date: 20110923
  Receipt Date: 20110915
  Transmission Date: 20111222
  Serious: Yes (Hospitalization)
  Sender: FDA-Public Use
  Company Number: US-MERCK-1105USA02527

PATIENT
  Age: 78 Year
  Sex: Female
  Weight: 73 kg

DRUGS (3)
  1. FOSAMAX [Suspect]
     Route: 048
     Dates: start: 20100101, end: 20110214
  2. VITAMIN D (UNSPECIFIED) [Concomitant]
     Route: 048
  3. FOSAMAX [Suspect]
     Indication: OSTEOPOROSIS
     Route: 048
     Dates: start: 19980101, end: 20080601

REACTIONS (26)
  - ATELECTASIS [None]
  - HAEMATOMA [None]
  - INCISION SITE HAEMORRHAGE [None]
  - DIARRHOEA [None]
  - MICTURITION URGENCY [None]
  - PROTEUS TEST POSITIVE [None]
  - FRACTURED SACRUM [None]
  - ADVERSE EVENT [None]
  - ANAEMIA POSTOPERATIVE [None]
  - INTERNATIONAL NORMALISED RATIO INCREASED [None]
  - FALL [None]
  - PULMONARY EMBOLISM [None]
  - PLEURAL EFFUSION [None]
  - HYPERTENSION [None]
  - HIATUS HERNIA [None]
  - WOUND DRAINAGE [None]
  - OSTEOARTHRITIS [None]
  - SCOLIOSIS [None]
  - PAIN [None]
  - FEMUR FRACTURE [None]
  - CARDIOMEGALY [None]
  - UTERINE DISORDER [None]
  - HAEMATOCRIT DECREASED [None]
  - VITAMIN D DECREASED [None]
  - DEEP VEIN THROMBOSIS POSTOPERATIVE [None]
  - NOCTURIA [None]
